FAERS Safety Report 19062493 (Version 1)
Quarter: 2021Q1

REPORT INFORMATION
  Report Type: Spontaneous
  Country: US (occurrence: US)
  Receive Date: 20210326
  Receipt Date: 20210326
  Transmission Date: 20210420
  Serious: No
  Sender: FDA-Public Use
  Company Number: None

PATIENT
  Sex: Female

DRUGS (1)
  1. STELARA [Suspect]
     Active Substance: USTEKINUMAB
     Indication: CROHN^S DISEASE
     Dosage: ?          OTHER FREQUENCY:EVERY 6 WEEKS;OTHER ROUTE:UNDER THE SKIN?
     Dates: start: 20180810

REACTIONS (3)
  - Feeling jittery [None]
  - Abdominal pain [None]
  - Anxiety [None]
